FAERS Safety Report 14562640 (Version 1)
Quarter: 2018Q1

REPORT INFORMATION
  Report Type: Spontaneous
  Country: DE (occurrence: DE)
  Receive Date: 20180222
  Receipt Date: 20180222
  Transmission Date: 20180509
  Serious: Yes (Death, Life-Threatening)
  Sender: FDA-Public Use
  Company Number: DE-WEST-WARD PHARMACEUTICALS CORP.-DE-H14001-18-01303

PATIENT
  Age: 74 Year
  Sex: Female

DRUGS (2)
  1. CEFUROXIM HIKMA [Suspect]
     Active Substance: CEFUROXIME
     Indication: BRONCHITIS BACTERIAL
  2. CEFUROXIM HIKMA [Suspect]
     Active Substance: CEFUROXIME
     Indication: PNEUMONIA
     Route: 042
     Dates: start: 20180130, end: 20180130

REACTIONS (1)
  - Anaphylactic shock [Fatal]

NARRATIVE: CASE EVENT DATE: 20180130
